FAERS Safety Report 9848519 (Version 2)
Quarter: 2014Q1

REPORT INFORMATION
  Report Type: Spontaneous
  Country: GB (occurrence: GB)
  Receive Date: 20140128
  Receipt Date: 20140128
  Transmission Date: 20141002
  Serious: Yes (Other)
  Sender: FDA-Public Use
  Company Number: PHFR2013GB006513

PATIENT
  Age: 38 Year
  Sex: Male

DRUGS (7)
  1. CLOZARIL [Suspect]
     Indication: SCHIZOPHRENIA, PARANOID TYPE
     Dosage: 200 MG, DAILY
     Route: 048
     Dates: start: 20121217
  2. SIMVASTATIN [Concomitant]
     Dosage: 40 MG, DAILY
     Route: 048
     Dates: start: 201302
  3. GLICLAZIDE [Concomitant]
     Indication: DIABETES MELLITUS
     Dosage: 180 MG, DAILY
     Route: 048
     Dates: start: 201302
  4. METFORMIN [Concomitant]
     Indication: DIABETES MELLITUS
     Dosage: 2 G, DAILY
     Route: 048
     Dates: start: 201302
  5. OMEPRAZOLE [Concomitant]
     Indication: GASTROOESOPHAGEAL REFLUX DISEASE
     Dosage: 20 MG, DAILY
     Route: 048
     Dates: start: 201307
  6. SERTRALINE [Concomitant]
     Indication: DEPRESSION
     Dosage: 150 MG, DAILY
     Route: 048
     Dates: start: 201206
  7. CODEINE PHOSPHATE [Concomitant]
     Indication: PAIN
     Dosage: 60 MG, DAILY
     Route: 048
     Dates: start: 201401

REACTIONS (5)
  - Differential white blood cell count abnormal [Recovering/Resolving]
  - Monocyte count increased [Unknown]
  - Diabetes mellitus [Not Recovered/Not Resolved]
  - Eosinophil count increased [Unknown]
  - Gastrooesophageal reflux disease [Not Recovered/Not Resolved]
